FAERS Safety Report 24021257 (Version 2)
Quarter: 2024Q3

REPORT INFORMATION
  Report Type: Spontaneous
  Country: DE (occurrence: DE)
  Receive Date: 20240627
  Receipt Date: 20240701
  Transmission Date: 20241016
  Serious: Yes (Other)
  Sender: NOVARTIS
  Company Number: DE-002147023-NVSC2022DE243968

PATIENT
  Sex: Male

DRUGS (3)
  1. TASIGNA [Suspect]
     Active Substance: NILOTINIB
     Indication: Chronic myeloid leukaemia
     Dosage: 600 MG, QD (2 X 300 MG)
     Route: 065
     Dates: end: 2022
  2. TASIGNA [Suspect]
     Active Substance: NILOTINIB
     Dosage: 600 MG, QD (2 X 300 MG)
     Route: 065
     Dates: start: 202112
  3. TASIGNA [Suspect]
     Active Substance: NILOTINIB
     Dosage: 400MG
     Route: 065
     Dates: start: 2022

REACTIONS (8)
  - Visual impairment [Recovered/Resolved]
  - Visual impairment [Recovering/Resolving]
  - Cardiovascular disorder [Recovered/Resolved]
  - Rotator cuff syndrome [Unknown]
  - White blood cell count decreased [Unknown]
  - Platelet count decreased [Unknown]
  - Arthralgia [Unknown]
  - Inappropriate schedule of product administration [Unknown]

NARRATIVE: CASE EVENT DATE: 20221023
